FAERS Safety Report 6136006-4 (Version None)
Quarter: 2009Q1

REPORT INFORMATION
  Report Type: 
  Country: None (occurrence: None)
  Receive Date: 20090330
  Receipt Date: 20090323
  Transmission Date: 20090719
  Serious: Yes (Other)
  Sender: FDA-Public Use
  Company Number: US-ASTRAZENECA-2009UW07372

PATIENT
  Age: 71 Year
  Sex: Female
  Weight: 61.2 kg

DRUGS (3)
  1. CRESTOR [Suspect]
     Indication: ARTERIAL OCCLUSIVE DISEASE
     Route: 048
     Dates: start: 20090211, end: 20090212
  2. ATENOLOL [Concomitant]
     Indication: HYPERTENSION
     Route: 048
  3. ACTOS [Concomitant]

REACTIONS (1)
  - HYPERSENSITIVITY [None]
